FAERS Safety Report 17942581 (Version 1)
Quarter: 2020Q2

REPORT INFORMATION
  Report Type: Spontaneous
  Country: FR (occurrence: FR)
  Receive Date: 20200625
  Receipt Date: 20200625
  Transmission Date: 20200714
  Serious: Yes (Other)
  Sender: FDA-Public Use
  Company Number: FR-PFIZER INC-2020243987

PATIENT
  Age: 54 Year
  Sex: Female

DRUGS (8)
  1. XANAX [Suspect]
     Active Substance: ALPRAZOLAM
     Dosage: UNK
  2. IMOVANE [Suspect]
     Active Substance: ZOPICLONE
     Dosage: UNK
  3. TRAMADOL. [Suspect]
     Active Substance: TRAMADOL
     Dosage: UNK
  4. VALIUM [Suspect]
     Active Substance: DIAZEPAM
     Dosage: UNK
  5. TERCIAN [CYAMEMAZINE] [Suspect]
     Active Substance: CYAMEMAZINE
     Dosage: UNK
  6. LEXOMIL [Suspect]
     Active Substance: BROMAZEPAM
     Dosage: 3 DF, 1X/DAY (3 TABLETS IN THE EVENING)
     Route: 048
  7. NORDAZEPAM [Suspect]
     Active Substance: NORDAZEPAM
     Dosage: UNK
  8. SERESTA [Suspect]
     Active Substance: OXAZEPAM
     Dosage: UNK

REACTIONS (9)
  - Cholinergic syndrome [Recovered/Resolved]
  - Nausea [Recovered/Resolved]
  - Vomiting [Recovered/Resolved]
  - Major depression [Recovered/Resolved]
  - Weight decreased [Recovered/Resolved]
  - Salivary hypersecretion [Recovered/Resolved]
  - Fatigue [Recovered/Resolved]
  - Suicidal ideation [Recovered/Resolved]
  - Poisoning [Recovered/Resolved]
